FAERS Safety Report 20645283 (Version 1)
Quarter: 2022Q1

REPORT INFORMATION
  Report Type: Report from Study
  Country: BR (occurrence: BR)
  Receive Date: 20220328
  Receipt Date: 20220328
  Transmission Date: 20220423
  Serious: Yes (Hospitalization, Other)
  Sender: FDA-Public Use
  Company Number: BR-ABBVIE-22K-020-4331964-00

PATIENT
  Sex: Female
  Weight: 58 kg

DRUGS (3)
  1. RINVOQ [Suspect]
     Active Substance: UPADACITINIB
     Indication: Rheumatoid arthritis
     Dosage: IN THE MORNING
     Route: 048
     Dates: start: 20210906
  2. PREDNISOLONE [Suspect]
     Active Substance: PREDNISOLONE
     Indication: Rheumatoid arthritis
     Route: 065
  3. URSODIOL [Concomitant]
     Active Substance: URSODIOL
     Indication: Liver disorder
     Dates: end: 2021

REACTIONS (14)
  - Dengue fever [Recovered/Resolved]
  - Malaise [Unknown]
  - Petechiae [Unknown]
  - Liver function test abnormal [Unknown]
  - Platelet count decreased [Unknown]
  - Skin discolouration [Recovered/Resolved]
  - Liver disorder [Unknown]
  - Weight decreased [Recovering/Resolving]
  - Hypophagia [Unknown]
  - Pruritus [Unknown]
  - Swelling [Unknown]
  - Erythema [Recovered/Resolved]
  - Abdominal pain upper [Recovered/Resolved]
  - Rheumatoid arthritis [Unknown]

NARRATIVE: CASE EVENT DATE: 20210101
